FAERS Safety Report 7690386-7 (Version None)
Quarter: 2011Q3

REPORT INFORMATION
  Report Type: 
  Country: None (occurrence: None)
  Receive Date: 20110812
  Receipt Date: 20110803
  Transmission Date: 20111222
  Serious: Yes (Other)
  Sender: FDA-Public Use
  Company Number: AMAG201100174

PATIENT
  Age: 70 Year
  Sex: Female

DRUGS (2)
  1. FERAHEME [Suspect]
     Indication: MALABSORPTION
     Dosage: 510 MG, SINGLE, INTRAVENOUS
     Route: 042
     Dates: start: 20110629, end: 20110629
  2. FERAHEME [Suspect]
     Indication: IRON DEFICIENCY ANAEMIA
     Dosage: 510 MG, SINGLE, INTRAVENOUS
     Route: 042
     Dates: start: 20110629, end: 20110629

REACTIONS (3)
  - DYSPNOEA [None]
  - PRURITUS [None]
  - HYPOXIA [None]
